FAERS Safety Report 17075845 (Version 1)
Quarter: 2019Q4

REPORT INFORMATION
  Report Type: Spontaneous
  Country: US (occurrence: US)
  Receive Date: 20191126
  Receipt Date: 20191126
  Transmission Date: 20200122
  Serious: Yes (Hospitalization)
  Sender: FDA-Public Use
  Company Number: US-ENDO PHARMACEUTICALS INC-2019-110068

PATIENT
  Age: 32 Year
  Sex: Female
  Weight: 73 kg

DRUGS (13)
  1. TREPROSTINIL. [Suspect]
     Active Substance: TREPROSTINIL
     Dosage: 15.5 NG/KG/MIN, SINGLE DAY 3 PM DOSE
     Route: 058
  2. TREPROSTINIL. [Suspect]
     Active Substance: TREPROSTINIL
     Dosage: 15.5 NG/KG/MIN, BID DAY 4
     Route: 058
  3. TREPROSTINIL. [Suspect]
     Active Substance: TREPROSTINIL
     Dosage: 11.5 NG/KG/MIN, BID DAY 6
     Route: 058
  4. TREPROSTINIL. [Suspect]
     Active Substance: TREPROSTINIL
     Dosage: 18.5 NG/KG/MIN, SINGLE DAY 2 PM DOSE
     Route: 058
  5. TREPROSTINIL. [Suspect]
     Active Substance: TREPROSTINIL
     Dosage: 6.5 NG/KG/MIN, SINGLE DAY 7 PM
     Route: 058
  6. TREPROSTINIL. [Suspect]
     Active Substance: TREPROSTINIL
     Dosage: 1.0 NG/KG/MIN, SINGLE DAY 9 AM DOSE
     Route: 058
  7. TREPROSTINIL. [Suspect]
     Active Substance: TREPROSTINIL
     Dosage: 9.5 NG/KG/MIN, SINGLE DAY 7 AM
     Route: 058
  8. TREPROSTINIL. [Suspect]
     Active Substance: TREPROSTINIL
     Dosage: 2.5 NG/KG/MIN, SINGLE DAY 8 PM
     Route: 058
  9. TREPROSTINIL. [Suspect]
     Active Substance: TREPROSTINIL
     Dosage: 16.5 NG/KG/MIN, SINGLE DAY 3 AM DOSE
     Route: 058
  10. TREPROSTINIL. [Suspect]
     Active Substance: TREPROSTINIL
     Dosage: 20.5 NG/KG/MIN, SINGLE DAY 2 AM DOSE
     Route: 058
  11. TREPROSTINIL. [Suspect]
     Active Substance: TREPROSTINIL
     Dosage: 13.5 NG/KG/MIN, BID DAY 5
     Route: 058
  12. TREPROSTINIL. [Suspect]
     Active Substance: TREPROSTINIL
     Indication: PULMONARY ARTERIAL HYPERTENSION
     Dosage: 22.5 NG/KG/MIN, BID DAY 1
     Route: 058
  13. TREPROSTINIL. [Suspect]
     Active Substance: TREPROSTINIL
     Dosage: 4.5 NG/KG/MIN, SINGLE DAY 8 AM
     Route: 058

REACTIONS (3)
  - Migraine [Unknown]
  - Sepsis [Unknown]
  - Infusion site infection [Unknown]
